FAERS Safety Report 7793642-7 (Version None)
Quarter: 2011Q4

REPORT INFORMATION
  Report Type: 
  Country: None (occurrence: None)
  Receive Date: 20111003
  Receipt Date: 20110404
  Transmission Date: 20120403
  Serious: No
  Sender: FDA-Public Use
  Company Number: US-BAYER-2011-029778

PATIENT
  Age: 80 Year
  Sex: Male

DRUGS (4)
  1. WARFARIN SODIUM [Concomitant]
  2. LEVITRA [Suspect]
     Indication: ERECTILE DYSFUNCTION
     Dosage: 20 MG/24HR, UNK
     Route: 048
     Dates: start: 20080101
  3. ANTIHYPERTENSIVES [Concomitant]
  4. HMG COA REDUCTASE INHIBITORS [Concomitant]

REACTIONS (1)
  - DRUG INEFFECTIVE [None]
